FAERS Safety Report 18916932 (Version 2)
Quarter: 2021Q1

REPORT INFORMATION
  Report Type: Spontaneous
  Country: US (occurrence: US)
  Receive Date: 20210219
  Receipt Date: 20210225
  Transmission Date: 20210420
  Serious: Yes (Hospitalization)
  Sender: FDA-Public Use
  Company Number: US-JNJFOC-20210218915

PATIENT

DRUGS (2)
  1. EVITHROM [Suspect]
     Active Substance: THROMBIN HUMAN
     Indication: PROPHYLAXIS
     Route: 065
  2. SURGIFLO [Suspect]
     Active Substance: GELATIN
     Indication: PROPHYLAXIS
     Route: 065

REACTIONS (5)
  - Incision site swelling [Unknown]
  - Incision site erythema [Unknown]
  - Product use in unapproved indication [Unknown]
  - Dysphagia [Unknown]
  - Off label use [Unknown]
